FAERS Safety Report 13002181 (Version 1)
Quarter: 2016Q4

REPORT INFORMATION
  Report Type: Spontaneous
  Country: BR (occurrence: BR)
  Receive Date: 20161206
  Receipt Date: 20161206
  Transmission Date: 20170207
  Serious: Yes (Hospitalization, Other)
  Sender: FDA-Public Use
  Company Number: BR-GLAXOSMITHKLINE-BR2016GSK176922

PATIENT
  Age: 60 Year
  Sex: Male
  Weight: 82 kg

DRUGS (1)
  1. COMBODART [Suspect]
     Active Substance: DUTASTERIDE\TAMSULOSIN
     Indication: PROSTATOMEGALY
     Dosage: 1 DF, BID
     Route: 048

REACTIONS (6)
  - Rectal cancer [Recovered/Resolved]
  - Pain [Unknown]
  - Off label use [Unknown]
  - Surgery [Unknown]
  - Accidental overdose [Unknown]
  - Overdose [Unknown]

NARRATIVE: CASE EVENT DATE: 201406
